FAERS Safety Report 4978786-7 (Version None)
Quarter: 2006Q2

REPORT INFORMATION
  Report Type: 
  Country: None (occurrence: None)
  Receive Date: 20060417
  Receipt Date: 20060330
  Transmission Date: 20061013
  Serious: Yes (Other)
  Sender: FDA-Public Use
  Company Number: S06-CAN-01349-01

PATIENT
  Age: 22 Year
  Sex: Female

DRUGS (5)
  1. ESCITALOPRAM OXALATE [Suspect]
     Indication: ANXIETY
     Dosage: 5 MG QOD PO
     Route: 048
  2. ESCITALOPRAM OXALATE [Suspect]
     Indication: DEPRESSION
     Dosage: 5 MG QOD PO
     Route: 048
  3. ESCITALOPRAM OXALATE [Suspect]
     Indication: ANXIETY
     Dosage: 5 MG QD PO
     Route: 048
  4. ESCITALOPRAM OXALATE [Suspect]
     Indication: DEPRESSION
     Dosage: 5 MG QD PO
     Route: 048
  5. ARTANE [Concomitant]

REACTIONS (3)
  - ABNORMAL DREAMS [None]
  - PSYCHIATRIC SYMPTOM [None]
  - SELF-INJURIOUS IDEATION [None]
